FAERS Safety Report 8564963 (Version 2)
Quarter: 2014Q3

REPORT INFORMATION
  Report Type: Report from Study
  Country: US (occurrence: US)
  Receive Date: 20120516
  Receipt Date: 20140908
  Transmission Date: 20150326
  Serious: No
  Sender: FDA-Public Use
  Company Number: US-ALEXION-A201200271

PATIENT

DRUGS (2)
  1. DESFERAL [Suspect]
     Active Substance: DEFEROXAMINE MESYLATE
  2. SOLIRIS [Suspect]
     Active Substance: ECULIZUMAB
     Indication: PAROXYSMAL NOCTURNAL HAEMOGLOBINURIA
     Dosage: UNK
     Route: 042

REACTIONS (2)
  - Migraine [Unknown]
  - Muscle spasms [Unknown]

NARRATIVE: CASE EVENT DATE: 201201
